FAERS Safety Report 22224512 (Version 2)
Quarter: 2023Q2

REPORT INFORMATION
  Report Type: Spontaneous
  Country: JP (occurrence: JP)
  Receive Date: 20230418
  Receipt Date: 20230504
  Transmission Date: 20230721
  Serious: Yes (Death, Other)
  Sender: FDA-Public Use
  Company Number: None

PATIENT
  Sex: Male

DRUGS (30)
  1. BOTULINUM TOXIN TYPE A [Suspect]
     Active Substance: BOTULINUM TOXIN TYPE A
     Indication: Muscle spasticity
     Dosage: 400 UNITS, SINGLE
     Dates: start: 20221026, end: 20221026
  2. GASTER [Concomitant]
     Active Substance: FAMOTIDINE
     Dosage: 20 MG, SINGLE, ORODISPERSIBLE TABLET
     Dates: end: 202208
  3. GASTER [Concomitant]
     Active Substance: FAMOTIDINE
     Dosage: 20 MG, SINGLE, ORODISPERSIBLE TABLET
     Dates: start: 202208, end: 202209
  4. GASTER [Concomitant]
     Active Substance: FAMOTIDINE
     Dosage: 20 MG, SINGLE, ORODISPERSIBLE TABLET
     Dates: start: 202211
  5. MOSAPRIDE CITRATE [Concomitant]
     Active Substance: MOSAPRIDE CITRATE
     Dosage: 5 MG, BID
     Dates: end: 202207
  6. MOSAPRIDE CITRATE [Concomitant]
     Active Substance: MOSAPRIDE CITRATE
     Dosage: 5 MG, BID
     Dates: start: 202208, end: 202209
  7. MOSAPRIDE CITRATE [Concomitant]
     Active Substance: MOSAPRIDE CITRATE
     Dosage: 10 MG, BID
     Dates: start: 202210
  8. FLORINEF ACETATE [Concomitant]
     Active Substance: FLUDROCORTISONE ACETATE
     Dosage: 0.05 MG, QD
     Dates: end: 202207
  9. FLORINEF ACETATE [Concomitant]
     Active Substance: FLUDROCORTISONE ACETATE
     Dosage: 0.05 MG, QD
     Dates: start: 202208, end: 202209
  10. FLORINEF ACETATE [Concomitant]
     Active Substance: FLUDROCORTISONE ACETATE
     Dosage: 0.05 MG, QD
     Dates: start: 202210
  11. CARBIDOPA\LEVODOPA [Concomitant]
     Active Substance: CARBIDOPA\LEVODOPA
     Dosage: 50 MG, QD
     Dates: end: 202207
  12. CARBIDOPA\LEVODOPA [Concomitant]
     Active Substance: CARBIDOPA\LEVODOPA
     Dosage: 50 MG, QD
     Dates: start: 202208, end: 202209
  13. CARBIDOPA\LEVODOPA [Concomitant]
     Active Substance: CARBIDOPA\LEVODOPA
     Dosage: 50 MG, QD
     Dates: start: 202210
  14. BIOFERMIN [BACILLUS SUBTILIS;ENTEROCOCCUS FAECALIS;LACTOBACILLUS ACIDO [Concomitant]
     Dosage: 1 G, TID
     Dates: end: 202207
  15. BIOFERMIN [BACILLUS SUBTILIS;ENTEROCOCCUS FAECALIS;LACTOBACILLUS ACIDO [Concomitant]
     Dosage: 1 G, TID
     Dates: start: 202208, end: 202209
  16. BIOFERMIN [BACILLUS SUBTILIS;ENTEROCOCCUS FAECALIS;LACTOBACILLUS ACIDO [Concomitant]
     Dosage: 1 G, TID
     Dates: start: 202210
  17. SOLITA T GRANULES NO.3 [Concomitant]
     Dosage: 4 G, QD
     Dates: end: 202207
  18. SOLITA T GRANULES NO.3 [Concomitant]
     Dosage: 4 G, QD
     Dates: start: 202208, end: 202209
  19. SOLITA T GRANULES NO.3 [Concomitant]
     Dosage: 4 G, QD
     Dates: start: 202210
  20. URALYT U [POTASSIUM CITRATE;SODIUM CITRATE DIHYDRATE] [Concomitant]
     Dosage: 1 G, BID
     Dates: end: 202207
  21. URALYT U [POTASSIUM CITRATE;SODIUM CITRATE DIHYDRATE] [Concomitant]
     Dosage: 1 G, BID
     Dates: start: 202208, end: 202209
  22. URALYT U [POTASSIUM CITRATE;SODIUM CITRATE DIHYDRATE] [Concomitant]
     Dosage: 1 G, BID
     Dates: start: 202210
  23. FLUOROMETHOLONE [Concomitant]
     Active Substance: FLUOROMETHOLONE
     Dosage: UNK, TID, ~EYE DROPS, SOLUTION
     Route: 047
  24. LEVOFLOXACIN [Concomitant]
     Active Substance: LEVOFLOXACIN
     Dosage: UNK, TID
     Route: 047
  25. AMINO ACIDS\DEXTROSE\ELECTROLYTES NOS\SOYBEAN OIL\VITAMINS [Concomitant]
     Active Substance: AMINO ACIDS\DEXTROSE\ELECTROLYTES NOS\SOYBEAN OIL\VITAMINS
     Dosage: 1200 G
     Dates: start: 202206, end: 202206
  26. AMINO ACIDS\DEXTROSE\ELECTROLYTES NOS\SOYBEAN OIL\VITAMINS [Concomitant]
     Active Substance: AMINO ACIDS\DEXTROSE\ELECTROLYTES NOS\SOYBEAN OIL\VITAMINS
     Dosage: 1200 G
     Dates: start: 202212
  27. PETROLATUM [Concomitant]
     Active Substance: PETROLATUM
     Dosage: 600 G
     Dates: start: 202206
  28. GLYCOSAMINOGLYCANS [Concomitant]
     Active Substance: GLYCOSAMINOGLYCANS
     Dosage: 100 G
     Dates: start: 202206
  29. GLYCOSAMINOGLYCANS [Concomitant]
     Active Substance: GLYCOSAMINOGLYCANS
     Dosage: 150 G
     Dates: start: 202207
  30. EURAX [Concomitant]
     Active Substance: CROTAMITON
     Dosage: 100 G
     Dates: start: 202208

REACTIONS (1)
  - Marasmus [Fatal]

NARRATIVE: CASE EVENT DATE: 20230404
